FAERS Safety Report 6763952-0 (Version None)
Quarter: 2010Q2

REPORT INFORMATION
  Report Type: 
  Country: None (occurrence: None)
  Receive Date: 20100610
  Receipt Date: 20100607
  Transmission Date: 20101027
  Serious: Yes (Life-Threatening, Hospitalization, Other)
  Sender: FDA-Public Use
  Company Number: FI-ASTRAZENECA-2009SE01157

PATIENT
  Age: 28128 Day
  Sex: Male
  Weight: 73 kg

DRUGS (11)
  1. PLACEBO [Suspect]
     Indication: PROSTATE CANCER
     Route: 048
     Dates: start: 20090226, end: 20090313
  2. DOCETAXEL [Suspect]
     Indication: PROSTATE CANCER
     Route: 042
     Dates: start: 20090226, end: 20090226
  3. ESOMEPRATSOL [Suspect]
     Indication: DYSPEPSIA
     Route: 048
     Dates: start: 20090305, end: 20090319
  4. LEUPROLIDE ACETATE [Suspect]
     Route: 058
  5. PREDNISOLONE [Concomitant]
     Indication: PROSTATE CANCER
     Route: 048
     Dates: start: 20090226
  6. ACETYLSALICYLIC ACID [Concomitant]
     Indication: PROPHYLAXIS
     Route: 048
     Dates: end: 20090314
  7. QUININE [Concomitant]
     Indication: MUSCLE SPASMS
     Route: 048
  8. PLIMAX [Concomitant]
     Dosage: 1 TABLET
     Route: 048
  9. CALCICHEW D3 [Concomitant]
     Indication: PROSTATE CANCER
     Dosage: 4 TABLETS
     Route: 048
  10. LEUPRORELIN [Concomitant]
     Indication: PROSTATE CANCER
     Route: 058
     Dates: start: 20060728
  11. MEPROBAMATE [Concomitant]

REACTIONS (1)
  - CEREBRAL INFARCTION [None]
